FAERS Safety Report 10684136 (Version 2)
Quarter: 2015Q1

REPORT INFORMATION
  Report Type: Spontaneous
  Country: US (occurrence: US)
  Receive Date: 20141231
  Receipt Date: 20150113
  Transmission Date: 20150720
  Serious: Yes (Hospitalization, Other)
  Sender: FDA-Public Use
  Company Number: US-AUROBINDO-AUR-APL-2014-13564

PATIENT
  Age: 6 Month
  Sex: Female

DRUGS (6)
  1. PROCAINAMIDE [Suspect]
     Active Substance: PROCAINAMIDE HYDROCHLORIDE
     Dosage: UNK
     Route: 042
  2. ADENOSINE. [Suspect]
     Active Substance: ADENOSINE
     Dosage: 0.3 MG/KG, UNK
     Route: 065
  3. ESMOLOL [Suspect]
     Active Substance: ESMOLOL HYDROCHLORIDE
     Indication: TACHYCARDIA
     Dosage: 200 ?G/KG, PER MINUTE
     Route: 065
  4. PROCAINAMIDE [Suspect]
     Active Substance: PROCAINAMIDE HYDROCHLORIDE
     Indication: TACHYCARDIA
     Dosage: 15 MG/KG, UNK
     Route: 040
  5. LIDOCAINE. [Suspect]
     Active Substance: LIDOCAINE
     Indication: TACHYCARDIA
     Dosage: UNK
     Route: 065
  6. ADENOSINE. [Suspect]
     Active Substance: ADENOSINE
     Indication: TACHYCARDIA
     Dosage: 0.1 MG/KG, UNK
     Route: 065

REACTIONS (1)
  - Drug ineffective [Unknown]
